FAERS Safety Report 6546313-9 (Version None)
Quarter: 2010Q1

REPORT INFORMATION
  Report Type: 
  Country: None (occurrence: None)
  Receive Date: 20100119
  Receipt Date: 20100104
  Transmission Date: 20100710
  Serious: Yes (Death, Other)
  Sender: FDA-Public Use
  Company Number: AUR-APL-2010-00103

PATIENT
  Age: 49 Year
  Sex: Male

DRUGS (4)
  1. CITALOPRAM HYDROBROMIDE [Suspect]
     Dosage: ORAL
     Route: 048
  2. MIRTAZAPINE [Suspect]
     Dosage: ORAL
     Route: 048
  3. GABAPENTIN [Suspect]
     Dosage: ORAL
     Route: 048
  4. HYDROXYZINE PAMOATE [Suspect]
     Dosage: ORAL
     Route: 048

REACTIONS (2)
  - CARDIAC ARREST [None]
  - RESPIRATORY ARREST [None]
